FAERS Safety Report 5493379-3 (Version None)
Quarter: 2007Q4

REPORT INFORMATION
  Report Type: 
  Country: None (occurrence: None)
  Receive Date: 20071022
  Receipt Date: 20071022
  Transmission Date: 20080405
  Serious: No
  Sender: FDA-Public Use
  Company Number: None

PATIENT
  Age: 54 Year
  Sex: Male

DRUGS (3)
  1. AUGMENTIN '125' [Suspect]
     Dates: start: 20070116, end: 20070129
  2. ZANTAC [Concomitant]
  3. PRILOSEC [Concomitant]

REACTIONS (9)
  - CHOLELITHIASIS [None]
  - COLONIC POLYP [None]
  - DIVERTICULUM [None]
  - DYSPEPSIA [None]
  - EARLY SATIETY [None]
  - HEADACHE [None]
  - HEPATIC STEATOSIS [None]
  - LIVER INJURY [None]
  - PYREXIA [None]
